FAERS Safety Report 24678105 (Version 1)
Quarter: 2024Q4

REPORT INFORMATION
  Report Type: Spontaneous
  Country: IN (occurrence: IN)
  Receive Date: 20241129
  Receipt Date: 20241129
  Transmission Date: 20250114
  Serious: Yes (Death, Other)
  Sender: SANDOZ
  Company Number: IN-SANDOZ-SDZ2024IN098869

PATIENT
  Sex: Male

DRUGS (1)
  1. TACROLIMUS [Suspect]
     Active Substance: TACROLIMUS
     Indication: Renal transplant
     Dosage: UNK
     Route: 048

REACTIONS (2)
  - Hepatic failure [Fatal]
  - Renal failure [Fatal]
